FAERS Safety Report 23264458 (Version 1)
Quarter: 2023Q4

REPORT INFORMATION
  Report Type: Report from Study
  Country: CA (occurrence: CA)
  Receive Date: 20231205
  Receipt Date: 20231205
  Transmission Date: 20240110
  Serious: Yes (Hospitalization, Other)
  Sender: FDA-Public Use
  Company Number: CA-002147023-NVSC2022CA182018

PATIENT
  Age: 66 Year
  Sex: Female

DRUGS (8)
  1. HYRIMOZ [Suspect]
     Active Substance: ADALIMUMAB-ADAZ
     Dosage: 1 DOSAGE FORM, BIW
     Route: 058
     Dates: start: 202205, end: 20220828
  2. HYRIMOZ [Suspect]
     Active Substance: ADALIMUMAB-ADAZ
     Indication: Rheumatoid arthritis
     Dosage: 40 MG
     Route: 058
     Dates: start: 20220524
  3. HYRIMOZ [Suspect]
     Active Substance: ADALIMUMAB-ADAZ
     Dosage: 1 DOSAGE FORM, BIW
     Route: 058
     Dates: end: 20220828
  4. VOLTAREN [Suspect]
     Active Substance: DICLOFENAC SODIUM
     Indication: Product used for unknown indication
     Dosage: UNK
     Route: 061
  5. MEDROLGIN [Concomitant]
     Indication: Somnolence
     Dosage: 8 MG, QD
     Route: 048
  6. MEDROLGIN [Concomitant]
     Indication: Pain
  7. NAPROXEN [Concomitant]
     Active Substance: NAPROXEN
     Indication: Product used for unknown indication
     Dosage: UNK
     Route: 065
  8. PREDNISONE [Concomitant]
     Active Substance: PREDNISONE
     Indication: Product used for unknown indication
     Dosage: UNK
     Route: 065

REACTIONS (25)
  - Pulmonary oedema [Unknown]
  - Kidney infection [Unknown]
  - Chest pain [Unknown]
  - Arthralgia [Unknown]
  - Gait disturbance [Unknown]
  - Mouth swelling [Unknown]
  - Pharyngeal swelling [Unknown]
  - Pain [Unknown]
  - Mobility decreased [Unknown]
  - Ocular hyperaemia [Unknown]
  - Pain in extremity [Unknown]
  - Thirst [Unknown]
  - Throat tightness [Unknown]
  - Tongue oedema [Unknown]
  - Joint swelling [Unknown]
  - Periorbital swelling [Unknown]
  - C-reactive protein increased [Unknown]
  - Asthenia [Unknown]
  - Blood glucose fluctuation [Unknown]
  - Inflammation [Unknown]
  - Eye swelling [Unknown]
  - Pruritus [Unknown]
  - Hypersensitivity [Unknown]
  - Inappropriate schedule of product administration [Unknown]
  - Drug ineffective [Unknown]

NARRATIVE: CASE EVENT DATE: 20220828
